FAERS Safety Report 18354504 (Version 1)
Quarter: 2020Q4

REPORT INFORMATION
  Report Type: Spontaneous
  Country: US (occurrence: US)
  Receive Date: 20201006
  Receipt Date: 20201006
  Transmission Date: 20210114
  Serious: Yes (Hospitalization)
  Sender: FDA-Public Use
  Company Number: None

PATIENT
  Age: 67 Year
  Sex: Male
  Weight: 98 kg

DRUGS (2)
  1. APIXABAN (APIXABAN 5MG TAB) [Suspect]
     Active Substance: APIXABAN
     Indication: ATRIAL FIBRILLATION
     Route: 048
     Dates: start: 20200901
  2. ASPIRIN (ASPIRIN 81MG TAB, EC) [Suspect]
     Active Substance: ASPIRIN
     Indication: ARTERIAL STENT INSERTION
     Dosage: ?          OTHER FREQUENCY:AM;?
     Route: 048
     Dates: start: 20170206, end: 20200907

REACTIONS (2)
  - Haemorrhage [None]
  - Melaena [None]

NARRATIVE: CASE EVENT DATE: 20200908
